FAERS Safety Report 8471832-8 (Version None)
Quarter: 2012Q2

REPORT INFORMATION
  Report Type: 
  Country: None (occurrence: None)
  Receive Date: 20120621
  Receipt Date: 20120606
  Transmission Date: 20120825
  Serious: Yes (Death, Other)
  Sender: FDA-Public Use
  Company Number: US-2012-10711

PATIENT
  Age: 44 Year
  Sex: Female

DRUGS (3)
  1. BUSULFAN [Suspect]
     Indication: DRUG THERAPY
     Dosage: 260 MG/M2, PARENTERAL
     Route: 051
  2. ALEMTUZUMAB (ALEMTUZUMAB) [Suspect]
     Indication: DRUG THERAPY
     Dosage: 80 MG MILLIGRAM(S), PARENTERAL
     Route: 051
  3. FLUDARABINE PHOSPHATE [Suspect]
     Indication: DRUG THERAPY
     Dosage: 160 MG/M2, PARENTERAL
     Route: 051

REACTIONS (4)
  - URINARY TRACT OBSTRUCTION [None]
  - MULTI-ORGAN FAILURE [None]
  - CYSTITIS VIRAL [None]
  - HERPES VIRUS INFECTION [None]
